FAERS Safety Report 11399511 (Version 1)
Quarter: 2015Q3

REPORT INFORMATION
  Report Type: Spontaneous
  Country: US (occurrence: None)
  Receive Date: 20150819
  Receipt Date: 20150819
  Transmission Date: 20151125
  Serious: No
  Sender: FDA-Public Use
  Company Number: None

PATIENT
  Age: 39 Year
  Sex: Female
  Weight: 127.01 kg

DRUGS (4)
  1. DULOXETINE HCL [Suspect]
     Active Substance: DULOXETINE HYDROCHLORIDE
     Indication: PAIN
     Dosage: 1
     Route: 048
     Dates: start: 20150810, end: 20150818
  2. ESTRADIOL 1MG [Concomitant]
  3. DULOXETINE HCL [Suspect]
     Active Substance: DULOXETINE HYDROCHLORIDE
     Indication: AFFECTIVE DISORDER
     Dosage: 1
     Route: 048
     Dates: start: 20150810, end: 20150818
  4. DULOXETINE. [Concomitant]
     Active Substance: DULOXETINE

REACTIONS (4)
  - Product quality issue [None]
  - Pain [None]
  - Affective disorder [None]
  - Drug ineffective [None]

NARRATIVE: CASE EVENT DATE: 20150818
